FAERS Safety Report 7250779-9 (Version None)
Quarter: 2011Q1

REPORT INFORMATION
  Report Type: 
  Country: None (occurrence: None)
  Receive Date: 20110128
  Receipt Date: 20110117
  Transmission Date: 20110831
  Serious: Yes (Hospitalization)
  Sender: FDA-Public Use
  Company Number: JP-AMGEN-JPNCT2010011116

PATIENT
  Age: 70 Year
  Sex: Male
  Weight: 64 kg

DRUGS (11)
  1. IRINOTECAN HYDROCHLORIDE [Suspect]
     Indication: COLORECTAL CANCER
     Route: 041
     Dates: start: 20100914, end: 20101012
  2. CORTICOSTEROIDS [Concomitant]
     Indication: PROPHYLAXIS
     Dosage: UNK
     Route: 065
  3. MAXIPIME [Concomitant]
     Dosage: UNK
     Route: 042
  4. PANITUMUMAB [Suspect]
     Indication: COLORECTAL CANCER
     Dosage: 6 MG/KG, Q2WK
     Route: 041
     Dates: start: 20100914
  5. NEUTROGIN [Concomitant]
     Dosage: UNK
     Route: 042
  6. FLUOROURACIL [Suspect]
     Indication: COLORECTAL CANCER
     Route: 040
     Dates: start: 20100914, end: 20101012
  7. FLUOROURACIL [Suspect]
     Route: 041
     Dates: start: 20100914, end: 20101012
  8. GRANISETRON HCL [Concomitant]
     Dosage: UNK
     Route: 042
  9. DECADRON [Concomitant]
     Route: 042
  10. DECADRON PHOSPHATE [Concomitant]
     Dosage: UNK
     Route: 042
  11. CALCIUM LEVOFOLINATE [Suspect]
     Indication: COLORECTAL CANCER
     Route: 041
     Dates: start: 20100914, end: 20101012

REACTIONS (2)
  - NEUTROPHIL COUNT DECREASED [None]
  - PARONYCHIA [None]
